FAERS Safety Report 4334878-7 (Version None)
Quarter: 2004Q2

REPORT INFORMATION
  Report Type: 
  Country: None (occurrence: None)
  Receive Date: 20040408
  Receipt Date: 20040401
  Transmission Date: 20050107
  Serious: Yes (Other)
  Sender: FDA-Public Use
  Company Number: 200413883GDDC

PATIENT
  Age: 68 Year
  Sex: Female

DRUGS (10)
  1. ENOXAPARIN SODIUM [Suspect]
     Indication: DEEP VENOUS THROMBOSIS PROPHYLAXIS
     Route: 058
  2. METRONIDAZOLE [Concomitant]
     Route: 042
  3. LANSOPRAZOLE [Concomitant]
  4. ACETAMINOPHEN [Concomitant]
  5. SALBUTAMOL NEBULIZER [Concomitant]
  6. VANCOMYCIN [Concomitant]
     Route: 048
  7. DILTIAZEM [Concomitant]
  8. THYROXINE [Concomitant]
  9. ACTRAPID [Concomitant]
  10. COLOMYCIN [Concomitant]

REACTIONS (2)
  - BLOOD ALKALINE PHOSPHATASE INCREASED [None]
  - GAMMA-GLUTAMYLTRANSFERASE INCREASED [None]
